FAERS Safety Report 9789479 (Version 1)
Quarter: 2013Q4

REPORT INFORMATION
  Report Type: Spontaneous
  Country: GB (occurrence: GB)
  Receive Date: 20131231
  Receipt Date: 20131231
  Transmission Date: 20140711
  Serious: Yes (Other)
  Sender: FDA-Public Use
  Company Number: GB-AMGEN-GBRSP2013091017

PATIENT
  Age: 50 Year
  Sex: Female
  Weight: 111 kg

DRUGS (2)
  1. ENBREL [Suspect]
     Indication: PRODUCT USED FOR UNKNOWN INDICATION
     Dosage: 50 MG, WEEKLY
     Route: 058
     Dates: start: 20130711, end: 20131017
  2. METHOTREXATE [Concomitant]
     Dosage: 20 MG, UNK
     Route: 048

REACTIONS (2)
  - Loss of consciousness [Unknown]
  - Fall [Unknown]
